FAERS Safety Report 16840182 (Version 1)
Quarter: 2019Q3

REPORT INFORMATION
  Report Type: Spontaneous
  Country: DK (occurrence: DK)
  Receive Date: 20190923
  Receipt Date: 20190923
  Transmission Date: 20191005
  Serious: Yes (Hospitalization)
  Sender: FDA-Public Use
  Company Number: DK-B.I. PHARMACEUTICALS,INC./RIDGEFIELD-2019-12-103573

PATIENT
  Age: 45 Year
  Sex: Male

DRUGS (1)
  1. JARDIANCE [Suspect]
     Active Substance: EMPAGLIFLOZIN
     Indication: TYPE 2 DIABETES MELLITUS
     Dosage: STYRKE: 10 MG.
     Route: 048
     Dates: start: 20180112, end: 20190908

REACTIONS (5)
  - Diabetic ketoacidosis [Recovered/Resolved]
  - Hyperglycaemia [Unknown]
  - Diarrhoea [Unknown]
  - General physical health deterioration [Unknown]
  - Dehydration [Unknown]

NARRATIVE: CASE EVENT DATE: 201908
